FAERS Safety Report 8620503-3 (Version None)
Quarter: 2012Q3

REPORT INFORMATION
  Report Type: 
  Country: None (occurrence: None)
  Receive Date: 20120824
  Receipt Date: 20120813
  Transmission Date: 20120928
  Serious: Yes (Other)
  Sender: FDA-Public Use
  Company Number: CA-BRISTOL-MYERS SQUIBB COMPANY-16516585

PATIENT
  Age: 61 Year
  Sex: Female

DRUGS (10)
  1. ORENCIA [Suspect]
     Indication: RHEUMATOID ARTHRITIS
     Dosage: INF:6, LAST INF: 19-JUL-12 LOT: 2C80093, EXP: SE2014
     Route: 042
     Dates: start: 20120326
  2. PREDNISONE TAB [Concomitant]
  3. SALMON OIL [Concomitant]
     Dosage: WILS SALMON OIL
  4. VITAMIN D [Concomitant]
  5. MILK THISTLE [Concomitant]
  6. METHOTREXATE [Concomitant]
  7. TEMAZEPAM [Concomitant]
  8. ZINC SULFATE [Concomitant]
  9. OXYCODONE HCL [Concomitant]
  10. FLAXSEED OIL [Concomitant]

REACTIONS (5)
  - CARDIOMEGALY [None]
  - VOMITING [None]
  - MASS [None]
  - DYSPEPSIA [None]
  - NAUSEA [None]
